FAERS Safety Report 11937810 (Version 1)
Quarter: 2016Q1

REPORT INFORMATION
  Report Type: Spontaneous
  Country: CN (occurrence: CN)
  Receive Date: 20160122
  Receipt Date: 20160122
  Transmission Date: 20160526
  Serious: Yes (Other)
  Sender: FDA-Public Use
  Company Number: CN-PFIZER INC-2016031910

PATIENT
  Age: 62 Year
  Sex: Male
  Weight: 72 kg

DRUGS (6)
  1. YI SUO [Concomitant]
     Indication: MUSCLE SPASMS
     Dosage: 0.2 G, 1X/DAY
     Route: 041
     Dates: start: 20150626, end: 20150723
  2. PIPERACILLIN SODIUM [Concomitant]
     Active Substance: PIPERACILLIN SODIUM
     Indication: INFECTION
     Dosage: 3.75 G, 2X/DAY
     Route: 041
     Dates: start: 20150626, end: 20150701
  3. LIPITOR [Suspect]
     Active Substance: ATORVASTATIN CALCIUM
     Indication: ARTERIOSCLEROSIS
     Dosage: 20 MG, 1X/DAY
     Route: 048
     Dates: start: 20150626, end: 20150701
  4. LU NAN LI KANG [Suspect]
     Active Substance: MILRINONE
     Indication: CARDIAC FAILURE
     Dosage: 10 MG, 1X/DAY
     Route: 042
     Dates: start: 20150626, end: 20150630
  5. XI KE [Concomitant]
     Indication: CEREBROVASCULAR ACCIDENT PROPHYLAXIS
     Dosage: 100 ML, 1X/DAY
     Route: 041
     Dates: start: 20150626, end: 20150701
  6. CORDARONE [Suspect]
     Active Substance: AMIODARONE HYDROCHLORIDE
     Indication: ATRIAL FIBRILLATION
     Dosage: 300 MG, 1X/DAY
     Route: 042
     Dates: start: 20150629, end: 20150629

REACTIONS (5)
  - Asthenia [Recovered/Resolved]
  - Ocular icterus [Recovered/Resolved]
  - Cardiac failure congestive [Recovered/Resolved]
  - Condition aggravated [Recovered/Resolved]
  - Malaise [Recovered/Resolved]

NARRATIVE: CASE EVENT DATE: 20150701
